FAERS Safety Report 9802867 (Version 1)
Quarter: 2014Q1

REPORT INFORMATION
  Report Type: Spontaneous
  Country: US (occurrence: None)
  Receive Date: 20140106
  Receipt Date: 20140106
  Transmission Date: 20141002
  Serious: Yes (Life-Threatening, Hospitalization, Disabling, Other)
  Sender: FDA-Public Use
  Company Number: None

PATIENT
  Age: 6 Year
  Sex: Female

DRUGS (1)
  1. LAMICTAL [Suspect]
     Indication: MANIA
     Dosage: 25MG 1QD ONCE DAILY TAKEN BY MOUTH
     Route: 048

REACTIONS (4)
  - Stevens-Johnson syndrome [None]
  - Hypersensitivity [None]
  - Photosensitivity reaction [None]
  - Apparent death [None]
